FAERS Safety Report 4981111-9 (Version None)
Quarter: 2006Q2

REPORT INFORMATION
  Report Type: 
  Country: None (occurrence: None)
  Receive Date: 20060418
  Receipt Date: 20060408
  Transmission Date: 20061013
  Serious: Yes (Hospitalization)
  Sender: FDA-Public Use
  Company Number: 13886

PATIENT
  Age: 3 Month
  Sex: Female

DRUGS (6)
  1. ACYCLOVIR [Suspect]
     Indication: HERPES SIMPLEX
     Dosage: 20 MG/KG TID IV
     Route: 042
  2. ACYCLOVIR [Suspect]
     Indication: HERPES SIMPLEX
     Dosage: 20 MG/KG TID IV
     Route: 042
  3. ACYCLOVIR [Suspect]
     Indication: HERPES SIMPLEX
     Dosage: 20 MG/KG QID PO
     Route: 048
  4. ACYCLOVIR [Suspect]
     Indication: HERPES SIMPLEX
     Dosage: 300 MG/M2 TID PO
     Route: 048
  5. ACYCLOVIR [Suspect]
     Indication: HERPES SIMPLEX
     Dosage: 20 MG/KG TID IV
     Route: 042
  6. ACYCLOVIR [Suspect]
     Indication: HERPES SIMPLEX

REACTIONS (17)
  - ASPARTATE AMINOTRANSFERASE INCREASED [None]
  - BLOOD ALKALINE PHOSPHATASE INCREASED [None]
  - BRAIN OEDEMA [None]
  - CSF GLUCOSE DECREASED [None]
  - CSF PROTEIN INCREASED [None]
  - CSF WHITE BLOOD CELL COUNT INCREASED [None]
  - DEVELOPMENTAL DELAY [None]
  - DRUG INEFFECTIVE [None]
  - ENCEPHALITIS HERPES [None]
  - ENCEPHALOMALACIA [None]
  - HAEMATOCRIT DECREASED [None]
  - HAEMOGLOBIN DECREASED [None]
  - LYMPHOCYTE PERCENTAGE INCREASED [None]
  - NEUTROPHIL PERCENTAGE DECREASED [None]
  - PARTIAL SEIZURES [None]
  - PYREXIA [None]
  - RED BLOOD CELLS CSF POSITIVE [None]
